FAERS Safety Report 8396702-5 (Version None)
Quarter: 2012Q2

REPORT INFORMATION
  Report Type: 
  Country: None (occurrence: None)
  Receive Date: 20120530
  Receipt Date: 20120517
  Transmission Date: 20120825
  Serious: Yes (Other)
  Sender: FDA-Public Use
  Company Number: PHHY2011CA103237

PATIENT
  Sex: Female

DRUGS (3)
  1. SANDOSTATIN LAR [Suspect]
     Indication: NEUROENDOCRINE CARCINOMA
     Dosage: 30 MG, EVERY 4 WEEKS
     Route: 030
     Dates: start: 20111125
  2. SANDOSTATIN [Suspect]
     Indication: NEUROENDOCRINE CARCINOMA
     Route: 058
     Dates: start: 20111122
  3. OTHER ANTI-ASTHMATICS, INHALANTS [Concomitant]

REACTIONS (16)
  - ABNORMAL FAECES [None]
  - OEDEMA PERIPHERAL [None]
  - NAUSEA [None]
  - SYNOVIAL CYST [None]
  - FLATULENCE [None]
  - FAECAL INCONTINENCE [None]
  - DIARRHOEA [None]
  - MALAISE [None]
  - VIRAL INFECTION [None]
  - INFLUENZA LIKE ILLNESS [None]
  - FATIGUE [None]
  - PROCTALGIA [None]
  - JOINT SWELLING [None]
  - COUGH [None]
  - NASOPHARYNGITIS [None]
  - NEOPLASM PROGRESSION [None]
